FAERS Safety Report 11270900 (Version 2)
Quarter: 2015Q4

REPORT INFORMATION
  Report Type: Spontaneous
  Country: DK (occurrence: DK)
  Receive Date: 20150714
  Receipt Date: 20151012
  Transmission Date: 20160304
  Serious: Yes (Life-Threatening, Hospitalization)
  Sender: FDA-Public Use
  Company Number: DK-FRESENIUS KABI-FK201503231

PATIENT
  Age: 57 Year
  Sex: Male
  Weight: 82 kg

DRUGS (10)
  1. PLACEBO [Concomitant]
     Active Substance: UNSPECIFIED INGREDIENT
     Indication: MESOTHELIOMA MALIGNANT
     Route: 042
     Dates: start: 20140820
  2. FOLIC ACID. [Concomitant]
     Active Substance: FOLIC ACID
     Route: 048
     Dates: start: 20141118
  3. UNIKALK BASIC [Concomitant]
     Indication: OSTEOPOROSIS
     Route: 048
     Dates: start: 20140911
  4. TREMELIMUMAB [Concomitant]
     Active Substance: TREMELIMUMAB
     Indication: MESOTHELIOMA MALIGNANT
     Route: 042
     Dates: start: 20140820
  5. PANTOPRAZOLE [Concomitant]
     Active Substance: PANTOPRAZOLE SODIUM
     Indication: GASTRITIS PROPHYLAXIS
     Dates: start: 20141201, end: 20150105
  6. CAELYX [Suspect]
     Active Substance: DOXORUBICIN HYDROCHLORIDE
     Indication: CHEMOTHERAPY
     Route: 065
     Dates: start: 20141118
  7. MALFIN [Concomitant]
     Active Substance: MORPHINE SULFATE
     Indication: PAIN
     Route: 048
     Dates: start: 20141027, end: 20150104
  8. MEDROL [Concomitant]
     Active Substance: METHYLPREDNISOLONE
     Indication: INTRACRANIAL PRESSURE INCREASED
     Route: 048
     Dates: start: 20141124, end: 20150105
  9. GEMCITABINE [Suspect]
     Active Substance: GEMCITABINE\GEMCITABINE HYDROCHLORIDE
     Indication: CHEMOTHERAPY
     Route: 065
     Dates: start: 20141118
  10. CARBOPLATIN (MANUFACTURER UNKNOWN) [Suspect]
     Active Substance: CARBOPLATIN
     Indication: CHEMOTHERAPY
     Route: 065
     Dates: start: 20141118

REACTIONS (4)
  - Febrile neutropenia [Unknown]
  - Platelet count decreased [Recovered/Resolved]
  - Haemoglobin decreased [Recovered/Resolved]
  - Hypotension [Recovered/Resolved]

NARRATIVE: CASE EVENT DATE: 20150105
